FAERS Safety Report 20744223 (Version 1)
Quarter: 2022Q2

REPORT INFORMATION
  Report Type: Spontaneous
  Country: US (occurrence: US)
  Receive Date: 20220425
  Receipt Date: 20220425
  Transmission Date: 20220720
  Serious: No
  Sender: FDA-Public Use
  Company Number: US-GALDERMA-US2021020598

PATIENT

DRUGS (5)
  1. PROACTIV MD ADAPALENE ACNE TREATMENT [Suspect]
     Active Substance: ADAPALENE
     Indication: Hypersensitivity
     Dosage: 1 DOSAGE FORM
     Route: 061
  2. PROACTIV MD DAILY OIL CONTROL SPF 30 [Suspect]
     Active Substance: AVOBENZONE\OCTISALATE\OCTOCRYLENE
     Indication: Hypersensitivity
     Dosage: 1 DOSAGE FORM
     Route: 061
  3. COSMETICS [Concomitant]
     Active Substance: COSMETICS
     Indication: Hypersensitivity
     Dosage: 1 DOSAGE FORM
     Route: 061
  4. PROACTIV DEEP CLEANSING BODY WASH [Concomitant]
     Active Substance: SALICYLIC ACID
     Indication: Hypersensitivity
     Dosage: 1 DOSAGE FORM
     Route: 061
  5. Proactiv Redness Relief Serum [Concomitant]
     Indication: Hypersensitivity
     Dosage: 1 DOSAGE FORM
     Route: 061

REACTIONS (4)
  - Dry skin [Unknown]
  - Erythema [Unknown]
  - Skin irritation [Unknown]
  - Product use in unapproved indication [Recovered/Resolved]
